FAERS Safety Report 7634059-5 (Version None)
Quarter: 2011Q3

REPORT INFORMATION
  Report Type: 
  Country: None (occurrence: None)
  Receive Date: 20110725
  Receipt Date: 20110713
  Transmission Date: 20111222
  Serious: Yes (Hospitalization)
  Sender: FDA-Public Use
  Company Number: FR-ELI_LILLY_AND_COMPANY-FR201107003289

PATIENT
  Sex: Male

DRUGS (2)
  1. GEMZAR [Suspect]
     Indication: BILE DUCT CANCER
     Dosage: 2014 MG, UNK
     Route: 042
     Dates: start: 20110120
  2. ELOXATIN [Concomitant]
     Indication: BILE DUCT CANCER
     Dosage: 160 MG, UNKNOWN
     Route: 042
     Dates: start: 20110120, end: 20110527

REACTIONS (1)
  - VISION BLURRED [None]
